FAERS Safety Report 7689268-6 (Version None)
Quarter: 2011Q3

REPORT INFORMATION
  Report Type: 
  Country: None (occurrence: None)
  Receive Date: 20110811
  Receipt Date: 20110808
  Transmission Date: 20111222
  Serious: Yes (Other)
  Sender: FDA-Public Use
  Company Number: US-005881

PATIENT
  Sex: Female
  Weight: 68.9467 kg

DRUGS (2)
  1. HYDRALAZINE HCL [Concomitant]
  2. TRANEXAMIC ACID [Suspect]
     Indication: MENORRHAGIA
     Dosage: (2 TABLETS TID ORAL)
     Route: 048
     Dates: start: 20110524, end: 20110705

REACTIONS (1)
  - TRANSIENT ISCHAEMIC ATTACK [None]
